FAERS Safety Report 19767522 (Version 2)
Quarter: 2021Q3

REPORT INFORMATION
  Report Type: Report from Study
  Country: TR (occurrence: TR)
  Receive Date: 20210830
  Receipt Date: 20210907
  Transmission Date: 20211014
  Serious: Yes (Death, Other)
  Sender: FDA-Public Use
  Company Number: NVSC2021TR189837

PATIENT
  Age: 60 Year
  Sex: Female
  Weight: 49 kg

DRUGS (1)
  1. INC280 [Suspect]
     Active Substance: CAPMATINIB
     Indication: LUNG ADENOCARCINOMA
     Dosage: 800 MG
     Route: 048
     Dates: start: 20210427, end: 20210710

REACTIONS (7)
  - Lung adenocarcinoma [Unknown]
  - Vomiting [Recovered/Resolved]
  - Nausea [Recovered/Resolved]
  - Malignant neoplasm progression [Unknown]
  - Nausea [Recovered/Resolved]
  - Arthralgia [Unknown]
  - Pneumonia [Fatal]

NARRATIVE: CASE EVENT DATE: 20210701
